FAERS Safety Report 4530698-9 (Version None)
Quarter: 2004Q4

REPORT INFORMATION
  Report Type: 
  Country: None (occurrence: None)
  Receive Date: 20041216
  Receipt Date: 20041203
  Transmission Date: 20050328
  Serious: Yes (Hospitalization)
  Sender: FDA-Public Use
  Company Number: 2004102203

PATIENT
  Age: 35 Year
  Sex: Female

DRUGS (1)
  1. DIFLUCAN [Suspect]
     Indication: VAGINAL CANDIDIASIS
     Dosage: 50 MG (50 MG, 1 IN 1 D)
     Dates: end: 20041007

REACTIONS (1)
  - ANAPHYLACTOID REACTION [None]
